FAERS Safety Report 7074900-0 (Version None)
Quarter: 2010Q4

REPORT INFORMATION
  Report Type: 
  Country: None (occurrence: None)
  Receive Date: 20101029
  Receipt Date: 20101014
  Transmission Date: 20110411
  Serious: Yes (Hospitalization)
  Sender: FDA-Public Use
  Company Number: US-AMGEN-USASP2010001388

PATIENT

DRUGS (8)
  1. PROCRIT [Suspect]
     Dosage: 20000 UNIT, 2 TIMES/WK
     Route: 058
     Dates: start: 20060101, end: 20101006
  2. HUMALOG [Concomitant]
     Dosage: UNK
     Route: 058
  3. LANTUS                             /01483501/ [Concomitant]
     Dosage: UNK
     Route: 058
  4. PROGRAF [Concomitant]
     Dosage: UNK UNK, BID
     Route: 048
  5. NORVASC [Concomitant]
     Dosage: 10 MG, UNK
     Route: 048
  6. METOPROLOL [Concomitant]
     Dosage: 50 MG, UNK
     Route: 048
  7. LASIX [Concomitant]
     Dosage: 40 MG, 2 TIMES/WK
     Route: 048
  8. MULTIVITAMIN                       /00097801/ [Concomitant]
     Dosage: UNK UNK, QOD
     Route: 048

REACTIONS (5)
  - FATIGUE [None]
  - HEADACHE [None]
  - INFLUENZA LIKE ILLNESS [None]
  - MYALGIA [None]
  - PAIN IN EXTREMITY [None]
